FAERS Safety Report 25359105 (Version 3)
Quarter: 2025Q4

REPORT INFORMATION
  Report Type: Report from Study
  Country: US (occurrence: US)
  Receive Date: 20250526
  Receipt Date: 20251218
  Transmission Date: 20260117
  Serious: Yes (Hospitalization, Other)
  Sender: MALLINCKRODT
  Company Number: US-MALLINCKRODT-MNK202501688

PATIENT
  Age: 79 Year
  Sex: Male

DRUGS (4)
  1. CORTICOTROPIN [Suspect]
     Active Substance: CORTICOTROPIN
     Indication: Nephritis
     Dosage: 40 UNITS
     Route: 058
  2. CORTICOTROPIN [Suspect]
     Active Substance: CORTICOTROPIN
     Dosage: 80 UNITS
     Route: 058
  3. INSULIN NOS [Concomitant]
     Active Substance: INSULIN NOS
     Dosage: UNKNOWN
  4. LOZEN [Concomitant]
     Indication: Asthma
     Dosage: UNKNOWN

REACTIONS (11)
  - Head injury [Unknown]
  - Hospitalisation [Unknown]
  - Frontotemporal dementia [Unknown]
  - Fall [Unknown]
  - Urinary tract infection [Recovering/Resolving]
  - Diarrhoea [Unknown]
  - Muscle spasms [Unknown]
  - Lethargy [Unknown]
  - Headache [Recovered/Resolved]
  - Product use in unapproved indication [Unknown]
  - Product storage error [Unknown]

NARRATIVE: CASE EVENT DATE: 20250401
